FAERS Safety Report 9456318 (Version 1)
Quarter: 2013Q3

REPORT INFORMATION
  Report Type: Spontaneous
  Country: US (occurrence: None)
  Receive Date: 20130812
  Receipt Date: 20130812
  Transmission Date: 20140515
  Serious: Yes (Disabling, Other)
  Sender: FDA-Public Use
  Company Number: None

PATIENT
  Age: 51 Year
  Sex: Male
  Weight: 111.13 kg

DRUGS (4)
  1. LORAZEPAM [Suspect]
     Indication: MUSCLE RELAXANT THERAPY
     Dosage: 1 PILL IN MORNING, 1/2 PILL?TAKEN BY MOUTH
     Route: 048
     Dates: start: 20130810, end: 20130810
  2. LORAZEPAM [Suspect]
     Indication: ANXIETY
     Dosage: 1 PILL IN MORNING, 1/2 PILL?TAKEN BY MOUTH
     Route: 048
     Dates: start: 20130810, end: 20130810
  3. LORAZEPAM [Suspect]
     Indication: PAIN
     Dosage: 1 PILL IN MORNING, 1/2 PILL?TAKEN BY MOUTH
     Route: 048
     Dates: start: 20130810, end: 20130810
  4. LORAZEPAM [Suspect]
     Indication: PANIC DISORDER
     Dosage: 1 PILL IN MORNING, 1/2 PILL?TAKEN BY MOUTH
     Route: 048
     Dates: start: 20130810, end: 20130810

REACTIONS (2)
  - Withdrawal syndrome [None]
  - Product substitution issue [None]
